FAERS Safety Report 8907736 (Version 1)
Quarter: 2012Q4

REPORT INFORMATION
  Report Type: 
  Country: US (occurrence: US)
  Receive Date: 20121113
  Receipt Date: 20121113
  Transmission Date: 20130627
  Serious: Yes (Other)
  Sender: FDA-Public Use
  Company Number: CHPA2012US023182

PATIENT
  Age: 57 Year
  Sex: Female

DRUGS (1)
  1. MAALOX ANTACID/ANTIGAS MAX QDTABS ASST [Suspect]
     Indication: DYSPEPSIA
     Dosage: 2 DF, PRN
     Route: 048

REACTIONS (5)
  - Basal cell carcinoma [Recovered/Resolved]
  - Breast cancer [Recovered/Resolved]
  - Diabetes mellitus [Not Recovered/Not Resolved]
  - Tremor [Not Recovered/Not Resolved]
  - Skin exfoliation [Recovered/Resolved]
